FAERS Safety Report 18911167 (Version 2)
Quarter: 2021Q1

REPORT INFORMATION
  Report Type: Report from Study
  Country: DE (occurrence: DE)
  Receive Date: 20210218
  Receipt Date: 20210329
  Transmission Date: 20210420
  Serious: Yes (Other)
  Sender: FDA-Public Use
  Company Number: DE-UCBSA-2021006557

PATIENT
  Sex: Female

DRUGS (3)
  1. ACEMETACIN [Concomitant]
     Active Substance: ACEMETACIN
     Indication: PRODUCT USED FOR UNKNOWN INDICATION
     Dosage: 150MG FOR 7DAYS WEEKLY
     Dates: start: 20170801, end: 20180815
  2. CIMZIA [Suspect]
     Active Substance: CERTOLIZUMAB PEGOL
     Indication: AXIAL SPONDYLOARTHRITIS
     Dosage: 200 MILLIGRAM, EV 2 WEEKS(QOW)
     Dates: start: 20180323, end: 20180622
  3. HUMINSULIN [Concomitant]
     Active Substance: INSULIN HUMAN
     Indication: PRODUCT USED FOR UNKNOWN INDICATION

REACTIONS (4)
  - Maternal exposure before pregnancy [Unknown]
  - Haemorrhage [Unknown]
  - Abortion [Unknown]
  - Multiple pregnancy [Recovered/Resolved]

NARRATIVE: CASE EVENT DATE: 20180704
